FAERS Safety Report 17960432 (Version 1)
Quarter: 2020Q2

REPORT INFORMATION
  Report Type: Spontaneous
  Country: FI (occurrence: FI)
  Receive Date: 20200629
  Receipt Date: 20200629
  Transmission Date: 20200714
  Serious: Yes (Disabling)
  Sender: FDA-Public Use
  Company Number: NVSC2020FI181613

PATIENT
  Age: 48 Year
  Sex: Male

DRUGS (6)
  1. GLUCOSAMIN PHARMA NORD [Interacting]
     Active Substance: GLUCOSAMINE SULFATE POTASSIUM CHLORIDE
     Indication: OSTEOARTHRITIS
     Dosage: 1.2 G, QD (DAILY)
     Route: 048
     Dates: start: 20200429, end: 20200515
  2. ROSUVASTATIN. [Suspect]
     Active Substance: ROSUVASTATIN
     Indication: HYPERCHOLESTEROLAEMIA
     Dosage: 20 MG, QD (DAILY)
     Route: 048
     Dates: start: 201701
  3. SEROQUEL [Interacting]
     Active Substance: QUETIAPINE FUMARATE
     Indication: MOOD ALTERED
     Dosage: 500 MG, QD (DAILY)
     Route: 048
     Dates: start: 200804
  4. THYROXIN [Interacting]
     Active Substance: LEVOTHYROXINE
     Indication: PRODUCT USED FOR UNKNOWN INDICATION
     Dosage: 125 UG, QD (DAILY)
     Route: 048
     Dates: start: 201401
  5. BISOPROLOL [Interacting]
     Active Substance: BISOPROLOL
     Indication: HEART RATE
     Dosage: 2.5 MG, QD (DAILY)
     Route: 048
     Dates: start: 200804
  6. TRIPTYL [Interacting]
     Active Substance: AMITRIPTYLINE HYDROCHLORIDE
     Indication: MOOD ALTERED
     Dosage: 150 MG, QD (DAILY)
     Route: 048
     Dates: start: 200804

REACTIONS (6)
  - Drug interaction [Recovering/Resolving]
  - Flatulence [Recovering/Resolving]
  - Abdominal distension [Recovering/Resolving]
  - Diarrhoea [Recovering/Resolving]
  - Malabsorption [Recovering/Resolving]
  - Insomnia [Recovering/Resolving]

NARRATIVE: CASE EVENT DATE: 20200507
